FAERS Safety Report 8504756-8 (Version None)
Quarter: 2012Q3

REPORT INFORMATION
  Report Type: 
  Country: None (occurrence: None)
  Receive Date: 20120712
  Receipt Date: 20120703
  Transmission Date: 20120928
  Serious: Yes (Hospitalization)
  Sender: FDA-Public Use
  Company Number: US-BRISTOL-MYERS SQUIBB COMPANY-16586638

PATIENT
  Age: 55 Year
  Sex: Female
  Weight: 59 kg

DRUGS (14)
  1. PACLITAXEL [Suspect]
     Indication: NEOPLASM
     Dosage: OVER 3HRS ON DY 1 OF EACH 21 DAY CYCLE
     Route: 042
     Dates: start: 20120117
  2. DIPHENHYDRAMINE HCL [Concomitant]
     Indication: PROPHYLAXIS
     Dosage: IV 50MG TILL 17JAN12. ORAL 50MG FROM 20FEB12
     Route: 042
     Dates: start: 20120117
  3. METOCLOPRAMIDE [Concomitant]
     Dates: start: 20120124
  4. ONDANSETRON [Concomitant]
     Indication: PROPHYLAXIS OF NAUSEA AND VOMITING
     Route: 042
     Dates: start: 20120117
  5. ERGOCALCIFEROL [Concomitant]
     Indication: SUPPLEMENTATION THERAPY
     Dates: start: 20110201
  6. MULTI-VITAMIN [Concomitant]
     Indication: SUPPLEMENTATION THERAPY
     Dates: start: 20100101
  7. LOPERAMIDE [Concomitant]
     Indication: DIARRHOEA
     Dosage: 1 DF : 16TAB
     Dates: start: 20120403
  8. OXYCODONE HCL [Concomitant]
     Indication: ABDOMINAL PAIN
     Dates: start: 20120218
  9. SENNOSIDE A+B [Concomitant]
     Dates: start: 20120112
  10. FAMOTIDINE [Concomitant]
     Indication: PROPHYLAXIS OF NAUSEA AND VOMITING
     Route: 042
     Dates: start: 20120117
  11. POTASSIUM GLUCONATE TAB [Concomitant]
     Indication: HYPOKALAEMIA
     Dates: start: 20120315, end: 20120408
  12. DEXAMETHASONE [Concomitant]
     Indication: PROPHYLAXIS
     Dates: start: 20120117
  13. ACETAMINOPHEN [Concomitant]
     Indication: PAIN
     Dates: start: 20120312
  14. CALCIUM CARBONATE [Concomitant]
     Indication: SUPPLEMENTATION THERAPY
     Dates: start: 20100101

REACTIONS (4)
  - DIARRHOEA [None]
  - HYPOKALAEMIA [None]
  - PANCREATITIS ACUTE [None]
  - BLOOD MAGNESIUM DECREASED [None]
